FAERS Safety Report 6277667-9 (Version None)
Quarter: 2009Q3

REPORT INFORMATION
  Report Type: 
  Country: None (occurrence: None)
  Receive Date: 20090722
  Receipt Date: 20090709
  Transmission Date: 20100115
  Serious: Yes (Hospitalization, Other)
  Sender: FDA-Public Use
  Company Number: US-ELI_LILLY_AND_COMPANY-US200907001846

PATIENT
  Sex: Male

DRUGS (10)
  1. ZYPREXA [Suspect]
     Indication: SCHIZOAFFECTIVE DISORDER BIPOLAR TYPE
     Dosage: 5 MG, UNK
     Dates: start: 20090409, end: 20090101
  2. ZYPREXA [Suspect]
     Dosage: 7.5 MG, UNK
     Dates: start: 20090101, end: 20090619
  3. ZYPREXA [Suspect]
     Dosage: 15 MG, OTHER
  4. ZYPREXA ZYDIS [Suspect]
     Dosage: 1 D/F, UNK
  5. DEPAKOTE ER [Concomitant]
     Indication: SCHIZOPHRENIA
     Dosage: 1000 MG, UNK
     Dates: start: 20090409
  6. DEPAKOTE ER [Concomitant]
     Dosage: 500 MG, QOD
     Dates: start: 20090521
  7. VISTARIL [Concomitant]
     Dosage: 50 MG, 3/D
     Dates: start: 20090409
  8. PRISTIQ [Concomitant]
     Dosage: 1 D/F, 2/D
     Dates: start: 20090501
  9. INVEGA [Concomitant]
     Dosage: UNK, UNK
     Dates: start: 20090619, end: 20090707
  10. COGENTIN [Concomitant]
     Dosage: 1 MG, 2/D
     Dates: start: 20090501

REACTIONS (4)
  - BLOOD GLUCOSE INCREASED [None]
  - DIABETES MELLITUS [None]
  - INTENTIONAL DRUG MISUSE [None]
  - MENTAL DISORDER [None]
